FAERS Safety Report 21332755 (Version 1)
Quarter: 2022Q3

REPORT INFORMATION
  Report Type: Spontaneous
  Country: US (occurrence: US)
  Receive Date: 20220914
  Receipt Date: 20220914
  Transmission Date: 20221027
  Serious: No
  Sender: FDA-Public Use
  Company Number: US-UNITED THERAPEUTICS-UNT-2022-018858

PATIENT
  Sex: Female

DRUGS (5)
  1. REMODULIN [Suspect]
     Active Substance: TREPROSTINIL
     Indication: Pulmonary arterial hypertension
     Dosage: UNK, CONTINUING
     Route: 058
     Dates: start: 202110
  2. REMODULIN [Suspect]
     Active Substance: TREPROSTINIL
     Dosage: UNK (PUMP RATE 28 UL/HOUR), CONTINUING
     Route: 058
  3. REMODULIN [Suspect]
     Active Substance: TREPROSTINIL
     Dosage: 0.02778 ?G/KG (PUMP RATE 26 UL/HOUR), CONTINUING
     Route: 058
     Dates: start: 20220816
  4. REMODULIN [Suspect]
     Active Substance: TREPROSTINIL
     Dosage: 0.03077 ?G/KG, CONTINUING
     Route: 058
     Dates: start: 2022
  5. GABAPENTIN [Suspect]
     Active Substance: GABAPENTIN
     Indication: Pain
     Dosage: UNK
     Route: 065

REACTIONS (7)
  - Weight decreased [Not Recovered/Not Resolved]
  - Pain in jaw [Unknown]
  - Headache [Unknown]
  - Arthralgia [Unknown]
  - Therapeutic response decreased [Unknown]
  - Fatigue [Unknown]
  - Pain [Unknown]
